FAERS Safety Report 10025005 (Version 1)
Quarter: 2014Q1

REPORT INFORMATION
  Report Type: Report from Study
  Country: CA (occurrence: CA)
  Receive Date: 20140320
  Receipt Date: 20140320
  Transmission Date: 20141002
  Serious: Yes (Hospitalization)
  Sender: FDA-Public Use
  Company Number: PHHY2014CA031327

PATIENT
  Sex: Male

DRUGS (1)
  1. TASIGNA [Suspect]
     Indication: CHRONIC MYELOID LEUKAEMIA
     Dosage: 400 MG, BID
     Route: 048
     Dates: start: 20140215, end: 20140301

REACTIONS (5)
  - Intestinal obstruction [Unknown]
  - Rash generalised [Unknown]
  - Asthenia [Unknown]
  - Gastrointestinal inflammation [Unknown]
  - Gastrointestinal pain [Unknown]
